FAERS Safety Report 9631664 (Version 1)
Quarter: 2013Q3

REPORT INFORMATION
  Report Type: Spontaneous
  Country: BE (occurrence: None)
  Receive Date: 20130930
  Receipt Date: 20130930
  Transmission Date: 20140515
  Serious: Yes (Other)
  Sender: FDA-Public Use
  Company Number: 2013035985

PATIENT
  Age: 4 Year
  Sex: Male

DRUGS (1)
  1. HIZENTRA [Suspect]
     Dosage: 2 G 1X/WEEK, DOSE: 15 ( UNIT?)
     Route: 058
     Dates: start: 20130320

REACTIONS (5)
  - Pseudocroup [None]
  - Hyperventilation [None]
  - Flushing [None]
  - Nasal congestion [None]
  - Fatigue [None]
